FAERS Safety Report 8302142-7 (Version None)
Quarter: 2012Q2

REPORT INFORMATION
  Report Type: 
  Country: None (occurrence: None)
  Receive Date: 20120420
  Receipt Date: 20120410
  Transmission Date: 20120825
  Serious: Yes (Other)
  Sender: FDA-Public Use
  Company Number: NL-BRISTOL-MYERS SQUIBB COMPANY-16537938

PATIENT
  Age: 60 Year
  Sex: Male

DRUGS (5)
  1. GEMCITABINE [Suspect]
     Indication: NON-SMALL CELL LUNG CANCER
  2. ERLOTINIB HYDROCHLORIDE [Suspect]
     Indication: NON-SMALL CELL LUNG CANCER
  3. DOCETAXEL [Suspect]
     Indication: NON-SMALL CELL LUNG CANCER
  4. PEMETREXED [Suspect]
     Indication: NON-SMALL CELL LUNG CANCER
  5. CISPLATIN [Suspect]
     Indication: NON-SMALL CELL LUNG CANCER

REACTIONS (2)
  - DRUG LEVEL INCREASED [None]
  - INTERSTITIAL LUNG DISEASE [None]
